FAERS Safety Report 6519765-8 (Version None)
Quarter: 2009Q4

REPORT INFORMATION
  Report Type: 
  Country: None (occurrence: None)
  Receive Date: 20091228
  Receipt Date: 20091215
  Transmission Date: 20100525
  Serious: Yes (Hospitalization, Other)
  Sender: FDA-Public Use
  Company Number: IT-PFIZER INC-2009310821

PATIENT
  Age: 32 Year
  Sex: Male

DRUGS (1)
  1. ZELDOX [Suspect]
     Indication: SCHIZOAFFECTIVE DISORDER
     Dosage: 40 MG, 2X/DAY
     Dates: start: 20091203, end: 20091204

REACTIONS (3)
  - GRAND MAL CONVULSION [None]
  - HEAD INJURY [None]
  - UPPER LIMB FRACTURE [None]
